FAERS Safety Report 11697029 (Version 2)
Quarter: 2015Q4

REPORT INFORMATION
  Report Type: Other
  Country: JP (occurrence: JP)
  Receive Date: 20151104
  Receipt Date: 20151116
  Transmission Date: 20160304
  Serious: Yes (Other)
  Sender: FDA-Public Use
  Company Number: JP-DEP_12936_2015

PATIENT
  Age: 90 Year
  Sex: Female

DRUGS (1)
  1. TAPENTA (TAPENTADOL) [Suspect]
     Active Substance: TAPENTADOL HYDROCHLORIDE
     Indication: CANCER PAIN
     Route: 048

REACTIONS (2)
  - Delirium [Recovering/Resolving]
  - Middle insomnia [Recovering/Resolving]
